FAERS Safety Report 4681795-9 (Version None)
Quarter: 2005Q2

REPORT INFORMATION
  Report Type: 
  Country: None (occurrence: None)
  Receive Date: 20050601
  Receipt Date: 20050517
  Transmission Date: 20051028
  Serious: Yes (Hospitalization)
  Sender: FDA-Public Use
  Company Number: USA021225324

PATIENT
  Age: 6 Year
  Sex: Male

DRUGS (1)
  1. ZYPREXA [Suspect]
     Indication: AUTISM
     Dosage: 2.5 MG/D IN THE MORNING
     Dates: start: 20010701, end: 20011201

REACTIONS (17)
  - ABASIA [None]
  - ABNORMAL BEHAVIOUR [None]
  - AGGRESSION [None]
  - CANDIDIASIS [None]
  - DENTAL CARIES [None]
  - FALL [None]
  - FRACTURE [None]
  - GASTROOESOPHAGEAL REFLUX DISEASE [None]
  - NYSTAGMUS [None]
  - PAIN [None]
  - PAINFUL ERECTION [None]
  - SELF INJURIOUS BEHAVIOUR [None]
  - SOMNOLENCE [None]
  - TOOTH LOSS [None]
  - ULCER [None]
  - VICTIM OF CHILD ABUSE [None]
  - VISION BLURRED [None]
